FAERS Safety Report 12088280 (Version 1)
Quarter: 2016Q1

REPORT INFORMATION
  Report Type: Report from Study
  Country: US (occurrence: US)
  Receive Date: 20160218
  Receipt Date: 20160218
  Transmission Date: 20160526
  Serious: Yes (Other)
  Sender: FDA-Public Use
  Company Number: US-ROCHE-1711207

PATIENT

DRUGS (3)
  1. RITUXIMAB [Suspect]
     Active Substance: RITUXIMAB
     Indication: WALDENSTROM^S MACROGLOBULINAEMIA
     Dosage: ON DAY 11 AS PART OF A 21-DAY CYCLE FOR 4 CONSECUTIVE CYCLES AS INDUCTION THERAPY
     Route: 042
  2. BORTEZOMIB [Suspect]
     Active Substance: BORTEZOMIB
     Indication: WALDENSTROM^S MACROGLOBULINAEMIA
     Dosage: ON DAYS 1, 4, 8, AND 11 AS PART OF A 21-DAY CYCLE FOR 4 CONSECUTIVE CYCLES AS INDUCTION THERAPY.
     Route: 042
  3. DEXAMETHASONE. [Suspect]
     Active Substance: DEXAMETHASONE
     Indication: WALDENSTROM^S MACROGLOBULINAEMIA
     Dosage: ON DAYS 1, 4, 8, AND 11 AS PART OF A 21-DAY CYCLE FOR 4 CONSECUTIVE CYCLES AS INDUCTION THERAPY.
     Route: 065

REACTIONS (4)
  - Thrombocytopenia [Unknown]
  - Infection [Unknown]
  - Neutropenia [Unknown]
  - Neuropathy peripheral [Unknown]
